FAERS Safety Report 23096284 (Version 1)
Quarter: 2023Q4

REPORT INFORMATION
  Report Type: Spontaneous
  Country: US (occurrence: US)
  Receive Date: 20231023
  Receipt Date: 20231023
  Transmission Date: 20240110
  Serious: Yes (Hospitalization, Other)
  Sender: FDA-Public Use
  Company Number: US-MLMSERVICE-20231005-4591752-1

PATIENT
  Age: 28 Year
  Sex: Male

DRUGS (1)
  1. CLOZAPINE [Suspect]
     Active Substance: CLOZAPINE
     Indication: Schizoaffective disorder
     Dosage: 75 MG AM, 450 MG HS

REACTIONS (3)
  - Toxicity to various agents [Unknown]
  - Pulmonary cavitation [Unknown]
  - Salivary hypersecretion [Unknown]
